FAERS Safety Report 23833895 (Version 1)
Quarter: 2024Q2

REPORT INFORMATION
  Report Type: Spontaneous
  Country: NO (occurrence: NO)
  Receive Date: 20240509
  Receipt Date: 20240509
  Transmission Date: 20240716
  Serious: Yes (Hospitalization, Other)
  Sender: FDA-Public Use
  Company Number: None

PATIENT
  Age: 62 Year
  Sex: Female
  Weight: 98 kg

DRUGS (1)
  1. VICTOZA [Suspect]
     Active Substance: LIRAGLUTIDE
     Indication: Diabetes mellitus
     Dosage: 1 DF, QD
     Route: 058
     Dates: start: 2022, end: 202311

REACTIONS (11)
  - Pancreatitis [Recovered/Resolved]
  - Impaired gastric emptying [Recovered/Resolved]
  - Pancreatitis relapsing [Recovered/Resolved]
  - Cholecystitis [Recovered/Resolved]
  - Gastritis [Recovered/Resolved]
  - Cold sweat [Unknown]
  - Back pain [Unknown]
  - Abdominal pain upper [Unknown]
  - Nausea [Unknown]
  - Abdominal distension [Unknown]
  - Vomiting [Unknown]

NARRATIVE: CASE EVENT DATE: 20220101
